FAERS Safety Report 11640524 (Version 1)
Quarter: 2015Q4

REPORT INFORMATION
  Report Type: Spontaneous
  Country: ES (occurrence: ES)
  Receive Date: 20151019
  Receipt Date: 20151019
  Transmission Date: 20160304
  Serious: Yes (Other)
  Sender: FDA-Public Use
  Company Number: PHHY2015ES125564

PATIENT
  Age: 57 Year
  Sex: Male

DRUGS (2)
  1. TEGRETOL [Suspect]
     Active Substance: CARBAMAZEPINE
     Indication: TRIGEMINAL NEURALGIA
     Dosage: 200 MG, BID (EACH 12 HOURS)
     Route: 065
     Dates: start: 201508, end: 20150824
  2. TEGRETOL [Suspect]
     Active Substance: CARBAMAZEPINE
     Dosage: 200 MG, TID (EACH 8 HOURS)
     Route: 065
     Dates: start: 20150825, end: 20150831

REACTIONS (3)
  - Gait disturbance [Recovered/Resolved]
  - Hypertension [Recovered/Resolved]
  - Tremor [Recovered/Resolved]

NARRATIVE: CASE EVENT DATE: 20150826
